FAERS Safety Report 24148745 (Version 2)
Quarter: 2024Q3

REPORT INFORMATION
  Report Type: Spontaneous
  Country: US (occurrence: US)
  Receive Date: 20240729
  Receipt Date: 20240801
  Transmission Date: 20241017
  Serious: Yes (Hospitalization, Other)
  Sender: PFIZER
  Company Number: US-PFIZER INC-202400223502

PATIENT
  Age: 62 Year
  Sex: Female

DRUGS (15)
  1. CARBOPLATIN [Suspect]
     Active Substance: CARBOPLATIN
     Indication: Nephroblastoma
     Dosage: 370 MG, CYCLIC
  2. CARBOPLATIN [Suspect]
     Active Substance: CARBOPLATIN
     Dosage: DOSES WERE REDUCED BY 20% FOR CYCLES 4
  3. CARBOPLATIN [Suspect]
     Active Substance: CARBOPLATIN
     Dosage: DOSES WERE REDUCED BY 50% FOR CYCLE 6
  4. TOPOTECAN HYDROCHLORIDE [Suspect]
     Active Substance: TOPOTECAN HYDROCHLORIDE
     Indication: Nephroblastoma
     Dosage: 1.2 MG/M2, CYCLIC
  5. TOPOTECAN HYDROCHLORIDE [Suspect]
     Active Substance: TOPOTECAN HYDROCHLORIDE
     Dosage: DOSES WERE REDUCED BY 20 % FOR CYCLES 4
  6. TOPOTECAN HYDROCHLORIDE [Suspect]
     Active Substance: TOPOTECAN HYDROCHLORIDE
     Dosage: DOSES WERE REDUCED BY 50 % FOR CYCLE 6
  7. IFOSFAMIDE [Suspect]
     Active Substance: IFOSFAMIDE
     Indication: Nephroblastoma
     Dosage: 1800 MG/M2, CYCLIC
  8. IFOSFAMIDE [Suspect]
     Active Substance: IFOSFAMIDE
     Dosage: DOSES WERE REDUCED BY 20 % FOR CYCLES 4
  9. IFOSFAMIDE [Suspect]
     Active Substance: IFOSFAMIDE
     Dosage: DOSES WERE REDUCED BY 50 % FOR CYCLE 6
  10. ETOPOSIDE [Suspect]
     Active Substance: ETOPOSIDE
     Indication: Nephroblastoma
     Dosage: 75 MG/M2, CYCLIC
  11. ETOPOSIDE [Suspect]
     Active Substance: ETOPOSIDE
     Dosage: DOSES WERE REDUCED BY 20 % FOR CYCLES 4
  12. ETOPOSIDE [Suspect]
     Active Substance: ETOPOSIDE
     Dosage: DOSES WERE REDUCED BY 50 % FOR CYCLE 6
  13. CYCLOPHOSPHAMIDE [Suspect]
     Active Substance: CYCLOPHOSPHAMIDE
     Indication: Nephroblastoma
     Dosage: 400 MG/M2, CYCLIC
  14. CYCLOPHOSPHAMIDE [Suspect]
     Active Substance: CYCLOPHOSPHAMIDE
     Dosage: DOSES WERE REDUCED BY 20 % FOR CYCLES 4
  15. CYCLOPHOSPHAMIDE [Suspect]
     Active Substance: CYCLOPHOSPHAMIDE
     Dosage: DOSES WERE REDUCED BY 50 % FOR CYCLE 6

REACTIONS (5)
  - Neutropenia [Unknown]
  - Nausea [Unknown]
  - Visual impairment [Unknown]
  - Drug effective for unapproved indication [Unknown]
  - Off label use [Unknown]
